FAERS Safety Report 5910018-5 (Version None)
Quarter: 2008Q4

REPORT INFORMATION
  Report Type: 
  Country: None (occurrence: None)
  Receive Date: 20081007
  Receipt Date: 20080123
  Transmission Date: 20090506
  Serious: No
  Sender: FDA-Public Use
  Company Number: US-ASTRAZENECA-2007UW21543

PATIENT
  Sex: Female

DRUGS (14)
  1. ARIMIDEX [Suspect]
     Indication: BREAST CANCER
     Route: 048
  2. ARIMIDEX [Suspect]
     Route: 048
  3. ZOCOR [Concomitant]
  4. METOPROLOL SUCCINATE [Concomitant]
  5. TYLENOL (CAPLET) [Concomitant]
  6. CALCIUM [Concomitant]
  7. VITAMIN D [Concomitant]
  8. REDITININE [Concomitant]
  9. ASPIRIN [Concomitant]
  10. TRIAMTERENE AND HYDROCHLOROTHIAZIDE [Concomitant]
  11. FISH OIL [Concomitant]
  12. ARTIFICIAL TEARS [Concomitant]
  13. LIBRIUM [Concomitant]
  14. MULTI-VITAMIN [Concomitant]

REACTIONS (4)
  - ARTHRITIS [None]
  - DRY EYE [None]
  - ECHOLALIA [None]
  - HOT FLUSH [None]
